FAERS Safety Report 21570993 (Version 1)
Quarter: 2022Q4

REPORT INFORMATION
  Report Type: Spontaneous
  Country: AT (occurrence: AT)
  Receive Date: 20221109
  Receipt Date: 20221109
  Transmission Date: 20230112
  Serious: Yes (Hospitalization)
  Sender: FDA-Public Use
  Company Number: AT-JNJFOC-20221115242

PATIENT
  Age: 69 Year
  Sex: Female

DRUGS (1)
  1. YONDELIS [Suspect]
     Active Substance: TRABECTEDIN
     Indication: Liposarcoma
     Route: 065
     Dates: start: 20221004

REACTIONS (3)
  - Necrosis [Unknown]
  - Administration site extravasation [Unknown]
  - Pain [Unknown]

NARRATIVE: CASE EVENT DATE: 20221004
